FAERS Safety Report 20942030 (Version 1)
Quarter: 2022Q2

REPORT INFORMATION
  Report Type: Spontaneous
  Country: US (occurrence: US)
  Receive Date: 20220610
  Receipt Date: 20220610
  Transmission Date: 20220721
  Serious: Yes (Other)
  Sender: FDA-Public Use
  Company Number: US-ABBVIE-22K-163-4426921-00

PATIENT
  Age: 67 Year
  Sex: Male
  Weight: 62.198 kg

DRUGS (2)
  1. SYNTHROID [Suspect]
     Active Substance: LEVOTHYROXINE SODIUM
     Indication: Product used for unknown indication
     Route: 048
  2. SYNTHROID [Suspect]
     Active Substance: LEVOTHYROXINE SODIUM
     Route: 048

REACTIONS (7)
  - Gastrointestinal disorder [Unknown]
  - Osteoporosis [Unknown]
  - Autoimmune thyroiditis [Unknown]
  - Blood thyroid stimulating hormone increased [Unknown]
  - Muscle spasms [Unknown]
  - Basedow^s disease [Unknown]
  - Visual impairment [Unknown]
